FAERS Safety Report 12709954 (Version 3)
Quarter: 2016Q4

REPORT INFORMATION
  Report Type: Report from Study
  Country: US (occurrence: US)
  Receive Date: 20160902
  Receipt Date: 20161123
  Transmission Date: 20170207
  Serious: Yes (Hospitalization)
  Sender: FDA-Public Use
  Company Number: US-EISAI MEDICAL RESEARCH-E7080-01278-CLI-US

PATIENT
  Age: 71 Year
  Sex: Female
  Weight: 65.9 kg

DRUGS (34)
  1. DIGOXIN. [Concomitant]
     Active Substance: DIGOXIN
     Route: 048
     Dates: start: 20130124
  2. AMLODIPINE BESYLATE. [Concomitant]
     Active Substance: AMLODIPINE BESYLATE
     Route: 048
     Dates: start: 20130124
  3. DEXILANT [Concomitant]
     Active Substance: DEXLANSOPRAZOLE
     Route: 048
     Dates: start: 20120731
  4. LENVATINIB [Suspect]
     Active Substance: LENVATINIB
     Route: 048
     Dates: start: 20160828
  5. ASPIRIN. [Concomitant]
     Active Substance: ASPIRIN
     Route: 048
     Dates: start: 20130503
  6. DIOVAN [Concomitant]
     Active Substance: VALSARTAN
     Route: 048
     Dates: start: 20120718
  7. CALCIUM [Concomitant]
     Active Substance: CALCIUM
     Dosage: UNKNOWN
     Route: 048
     Dates: start: 2004
  8. COENZYME Q10 [Concomitant]
     Active Substance: UBIDECARENONE
     Dosage: 10
     Route: 048
     Dates: start: 2004
  9. VITAMIN B12 [Concomitant]
     Active Substance: CYANOCOBALAMIN
     Dosage: 10
     Route: 048
     Dates: start: 2009
  10. EDARBI [Concomitant]
     Active Substance: AZILSARTAN KAMEDOXOMIL
     Dates: start: 20130517
  11. LEUCOVORIN. [Concomitant]
     Active Substance: LEUCOVORIN
     Route: 048
     Dates: start: 201004
  12. ELIQUIS [Concomitant]
     Active Substance: APIXABAN
  13. LENVATINIB [Suspect]
     Active Substance: LENVATINIB
     Route: 048
     Dates: start: 20130213, end: 20130525
  14. HYDROCHLOROTHIAZIDE. [Concomitant]
     Active Substance: HYDROCHLOROTHIAZIDE
     Route: 048
     Dates: start: 20130525
  15. FISH OIL [Concomitant]
     Active Substance: FISH OIL
     Dosage: UNKNOWN
     Route: 048
     Dates: start: 20130503
  16. METHOTREXATE. [Concomitant]
     Active Substance: METHOTREXATE
     Route: 048
     Dates: start: 20130509
  17. IMODIUM [Concomitant]
     Active Substance: LOPERAMIDE HYDROCHLORIDE
     Route: 048
     Dates: start: 20120828
  18. VITAMIN D [Concomitant]
     Active Substance: CHOLECALCIFEROL
     Dosage: 50 UNITS
     Route: 048
     Dates: start: 2004
  19. BYSTOLIC [Concomitant]
     Active Substance: NEBIVOLOL HYDROCHLORIDE
     Route: 048
     Dates: start: 20100502
  20. MOBIC [Concomitant]
     Active Substance: MELOXICAM
     Route: 048
     Dates: start: 20090901
  21. EDARBI [Concomitant]
     Active Substance: AZILSARTAN KAMEDOXOMIL
     Dates: start: 20130303, end: 20130513
  22. LENVATINIB [Suspect]
     Active Substance: LENVATINIB
     Route: 048
     Dates: start: 20130601, end: 20150512
  23. BIOTENE NOS [Concomitant]
     Active Substance: CETYLPYRIDINIUM CHLORIDE OR SODIUM FLUORIDE OR SODIUM MONOFLUOROPHOSPHATE OR GLUCOSE OXIDASE\LACTOFERRIN\LACTOPEROXIDASE BOVINE\LYSOZYME
     Dosage: UNKNOWN
     Route: 061
     Dates: start: 20120724
  24. LEVOTHYROXINE. [Concomitant]
     Active Substance: LEVOTHYROXINE
     Route: 065
     Dates: start: 20130213
  25. SYSTANE (HYPROMELLOSE 2910 (4000 MPA.S)) [Concomitant]
     Active Substance: HYPROMELLOSE 2910 (4000 MPA.S)
     Dosage: UNKNOWN
     Route: 047
     Dates: start: 2006
  26. SINGULAIR [Concomitant]
     Active Substance: MONTELUKAST SODIUM
     Route: 048
     Dates: start: 1999
  27. LENVATINIB [Suspect]
     Active Substance: LENVATINIB
     Indication: THYROID CANCER
     Route: 048
     Dates: start: 20120627, end: 20121206
  28. PRAVOCHOL [Concomitant]
     Route: 048
     Dates: start: 1999
  29. SODIUM DOCUSATE [Concomitant]
     Active Substance: DOCUSATE SODIUM
     Route: 048
     Dates: start: 20120725
  30. LENVATINIB [Suspect]
     Active Substance: LENVATINIB
     Route: 048
     Dates: start: 20121217, end: 20130203
  31. LENVATINIB [Suspect]
     Active Substance: LENVATINIB
     Route: 048
     Dates: start: 20150527, end: 20160824
  32. GLUCOSAMINE WITH CHONDRIOTIN [Concomitant]
     Dosage: 18
     Route: 048
     Dates: start: 2004
  33. DICLOFENAC TOPICAL [Concomitant]
  34. SINGULAIR [Concomitant]
     Active Substance: MONTELUKAST SODIUM

REACTIONS (2)
  - Small intestinal obstruction [Recovered/Resolved]
  - Renal haematoma [Recovered/Resolved]

NARRATIVE: CASE EVENT DATE: 20130529
